FAERS Safety Report 14925609 (Version 1)
Quarter: 2018Q2

REPORT INFORMATION
  Report Type: Report from Study
  Country: US (occurrence: US)
  Receive Date: 20180522
  Receipt Date: 20180522
  Transmission Date: 20180711
  Serious: No
  Sender: FDA-Public Use
  Company Number: PHEH2018US019886

PATIENT
  Sex: Male

DRUGS (1)
  1. IBUPROFEN TABLETS USP [Suspect]
     Active Substance: IBUPROFEN
     Indication: RHEUMATOID ARTHRITIS
     Route: 065

REACTIONS (1)
  - Back pain [Unknown]
